FAERS Safety Report 9685221 (Version 1)
Quarter: 2013Q4

REPORT INFORMATION
  Report Type: Spontaneous
  Country: US (occurrence: None)
  Receive Date: 20131112
  Receipt Date: 20131112
  Transmission Date: 20140711
  Serious: Yes (Death)
  Sender: FDA-Public Use
  Company Number: None

PATIENT
  Age: 50 Year
  Sex: Female
  Weight: 54.89 kg

DRUGS (2)
  1. DOCETAXEL [Suspect]
     Indication: LUNG CANCER METASTATIC
     Route: 042
     Dates: start: 20131004, end: 20131025
  2. SURAMIN [Suspect]
     Route: 042
     Dates: start: 20131004, end: 20131025

REACTIONS (4)
  - Dyspnoea [None]
  - Anxiety [None]
  - Acute respiratory failure [None]
  - Pneumonia [None]
